FAERS Safety Report 22518007 (Version 1)
Quarter: 2023Q2

REPORT INFORMATION
  Report Type: Spontaneous
  Country: CN (occurrence: CN)
  Receive Date: 20230605
  Receipt Date: 20230605
  Transmission Date: 20230722
  Serious: Yes (Hospitalization)
  Sender: FDA-Public Use
  Company Number: CN-AstraZeneca-2023A116476

PATIENT

DRUGS (3)
  1. ZOLADEX [Suspect]
     Active Substance: GOSERELIN ACETATE
     Indication: Endocrine disorder
     Dosage: 10.8MG ONCE/SINGLE ADMINISTRATION
     Route: 058
     Dates: start: 20230512
  2. ZOLADEX [Suspect]
     Active Substance: GOSERELIN ACETATE
     Indication: Endocrine disorder
     Dosage: UNK
     Route: 065
  3. BICALUTAMIDE [Concomitant]
     Active Substance: BICALUTAMIDE
     Indication: Product used for unknown indication
     Dosage: UNKNOWN
     Route: 065

REACTIONS (3)
  - White blood cell count increased [Recovered/Resolved]
  - Injection site haemorrhage [Recovered/Resolved]
  - Blood creatinine increased [Recovered/Resolved]

NARRATIVE: CASE EVENT DATE: 20230501
